FAERS Safety Report 8496820-7 (Version None)
Quarter: 2012Q3

REPORT INFORMATION
  Report Type: 
  Country: None (occurrence: None)
  Receive Date: 20120709
  Receipt Date: 20120702
  Transmission Date: 20120928
  Serious: Yes (Other)
  Sender: FDA-Public Use
  Company Number: BR-PFIZER INC-2012159052

PATIENT
  Age: 74 Year
  Sex: Male

DRUGS (3)
  1. PRADAXA [Concomitant]
     Indication: ANTICOAGULANT THERAPY
     Dosage: UNK
  2. LOSARTAN [Concomitant]
     Indication: HYPERTENSION
     Dosage: 1 TABLET 1X/DAY
  3. XALATAN [Suspect]
     Indication: INTRAOCULAR PRESSURE TEST
     Dosage: 1 DROP IN EACH EYE 1X/DAY
     Route: 047
     Dates: start: 20020101

REACTIONS (1)
  - GLAUCOMA [None]
